FAERS Safety Report 10230350 (Version 2)
Quarter: 2014Q2

REPORT INFORMATION
  Report Type: Spontaneous
  Country: AT (occurrence: AT)
  Receive Date: 20140611
  Receipt Date: 20140620
  Transmission Date: 20141212
  Serious: Yes (Hospitalization, Other)
  Sender: FDA-Public Use
  Company Number: AT-ELI_LILLY_AND_COMPANY-AT201406002372

PATIENT
  Sex: Female
  Weight: 77 kg

DRUGS (5)
  1. ATOMOXETINE HYDROCHLORIDE [Suspect]
     Indication: ATTENTION DEFICIT/HYPERACTIVITY DISORDER
     Dosage: 1 DF, UNKNOWN
     Route: 065
  2. ATOMOXETINE HYDROCHLORIDE [Suspect]
     Dosage: 40 MG, UNKNOWN
     Route: 048
     Dates: start: 20140423, end: 20140606
  3. TRILEPTAL [Concomitant]
     Indication: PRODUCT USED FOR UNKNOWN INDICATION
     Dosage: 600 MG, UNKNOWN
     Route: 048
     Dates: start: 20140423, end: 20140606
  4. CIPRALEX [Concomitant]
     Indication: PRODUCT USED FOR UNKNOWN INDICATION
     Dosage: 10 MG, UNKNOWN
     Route: 048
     Dates: start: 20140423, end: 20140603
  5. TRITTICO [Concomitant]
     Indication: PRODUCT USED FOR UNKNOWN INDICATION
     Dosage: 100 MG, UNKNOWN
     Route: 048
     Dates: start: 20140423, end: 20140606

REACTIONS (2)
  - Lower limb fracture [Recovered/Resolved]
  - Suicide attempt [Recovered/Resolved]
